FAERS Safety Report 21467652 (Version 1)
Quarter: 2022Q4

REPORT INFORMATION
  Report Type: Spontaneous
  Country: US (occurrence: US)
  Receive Date: 20221017
  Receipt Date: 20221017
  Transmission Date: 20230112
  Serious: No
  Sender: FDA-Public Use
  Company Number: US-ALLERGAN-2134103US

PATIENT
  Age: 76 Year
  Sex: Female
  Weight: 51.247 kg

DRUGS (2)
  1. LINZESS [Suspect]
     Active Substance: LINACLOTIDE
     Indication: Pain
     Dosage: UNK
  2. FIBERCON [Suspect]
     Active Substance: CALCIUM POLYCARBOPHIL

REACTIONS (7)
  - Pain [Unknown]
  - Frequent bowel movements [Unknown]
  - Dolichocolon [Unknown]
  - Off label use [Unknown]
  - Diarrhoea [Unknown]
  - Constipation [Unknown]
  - Drug ineffective for unapproved indication [Unknown]
